FAERS Safety Report 12610781 (Version 3)
Quarter: 2016Q3

REPORT INFORMATION
  Report Type: Spontaneous
  Country: US (occurrence: US)
  Receive Date: 20160801
  Receipt Date: 20160831
  Transmission Date: 20161109
  Serious: No
  Sender: FDA-Public Use
  Company Number: US-PFIZER INC-2016335684

PATIENT
  Age: 68 Year
  Sex: Female

DRUGS (11)
  1. MONTELUKAST SODIUM. [Concomitant]
     Active Substance: MONTELUKAST SODIUM
     Dosage: UNK
  2. IBRANCE [Suspect]
     Active Substance: PALBOCICLIB
     Indication: BREAST CANCER METASTATIC
     Dosage: 100 MG, DAILY
     Route: 048
     Dates: start: 20160614
  3. ALLEGRA ALLERGY [Concomitant]
     Active Substance: FEXOFENADINE HYDROCHLORIDE
     Dosage: UNK
  4. RESTASIS [Concomitant]
     Active Substance: CYCLOSPORINE
     Dosage: UNK
  5. FISH OIL BURP-LESS [Concomitant]
     Dosage: UNK
  6. ATORVASTATIN CALCIUM. [Concomitant]
     Active Substance: ATORVASTATIN CALCIUM
     Dosage: UNK
  7. FASLODEX [Concomitant]
     Active Substance: FULVESTRANT
     Dosage: 500 MG, MONTHLY
     Route: 030
  8. AMLODIPINE BESY-BENAZEPRIL HCL [Concomitant]
     Dosage: UNK
  9. BIOTIN MAXIMUM STRENGTH [Concomitant]
     Dosage: UNK
  10. ACIDOPHILUS EXTRA STRENGTH [Concomitant]
     Dosage: UNK
  11. VITAMIN D3 ADULT GUMMIES [Concomitant]
     Dosage: UNK

REACTIONS (4)
  - Upper-airway cough syndrome [Unknown]
  - Syncope [Recovered/Resolved]
  - White blood cell count decreased [Recovered/Resolved]
  - Throat irritation [Unknown]

NARRATIVE: CASE EVENT DATE: 20160629
